FAERS Safety Report 8532624-4 (Version None)
Quarter: 2012Q3

REPORT INFORMATION
  Report Type: 
  Country: None (occurrence: None)
  Receive Date: 20120724
  Receipt Date: 20120723
  Transmission Date: 20120928
  Serious: Yes (Death)
  Sender: FDA-Public Use
  Company Number: US-SHIRE-ALL1-2012-02053

PATIENT
  Sex: Male

DRUGS (1)
  1. CARBATROL [Suspect]
     Indication: TRIGEMINAL NEURALGIA
     Dosage: 100 MG, 3X/DAY:TID
     Route: 048

REACTIONS (2)
  - DRUG PRESCRIBING ERROR [None]
  - DEATH [None]
